FAERS Safety Report 7715569-9 (Version None)
Quarter: 2011Q3

REPORT INFORMATION
  Report Type: 
  Country: None (occurrence: None)
  Receive Date: 20110810
  Receipt Date: 20101115
  Transmission Date: 20111222
  Serious: Yes (Other)
  Sender: FDA-Public Use
  Company Number: 2010AT000071

PATIENT
  Age: 61 Year
  Sex: Male

DRUGS (2)
  1. EDEX [Suspect]
     Dosage: 10 UG;1X;ICAN 5 UG;1X;ICAN
     Route: 017
     Dates: start: 20101114, end: 20101114
  2. EDEX [Suspect]
     Dosage: 10 UG;1X;ICAN 5 UG;1X;ICAN
     Route: 017
     Dates: start: 20101111, end: 20101111

REACTIONS (2)
  - GENITAL PAIN [None]
  - ERECTION INCREASED [None]
